FAERS Safety Report 8874421 (Version 1)
Quarter: 2012Q4

REPORT INFORMATION
  Report Type: 
  Country: US (occurrence: US)
  Receive Date: 20121031
  Receipt Date: 20121031
  Transmission Date: 20130627
  Serious: No
  Sender: FDA-Public Use
  Company Number: US-009507513-1210USA002661

PATIENT
  Sex: Female

DRUGS (1)
  1. IMPLANON [Suspect]
     Dosage: UNK
     Route: 058
     Dates: start: 20120926

REACTIONS (5)
  - Injection site erythema [Unknown]
  - Mood altered [Unknown]
  - Implant site bruising [Unknown]
  - Rash maculo-papular [Unknown]
  - Injection site pruritus [Unknown]
